FAERS Safety Report 10707999 (Version 1)
Quarter: 2015Q1

REPORT INFORMATION
  Report Type: Spontaneous
  Country: US (occurrence: US)
  Receive Date: 20150113
  Receipt Date: 20150113
  Transmission Date: 20150721
  Serious: No
  Sender: FDA-Public Use
  Company Number: US-PFIZER INC-2015008093

PATIENT
  Age: 71 Year
  Sex: Male
  Weight: 152 kg

DRUGS (1)
  1. AMLODIPINE BESILATE [Suspect]
     Active Substance: AMLODIPINE BESYLATE
     Indication: BLOOD PRESSURE ABNORMAL
     Dosage: 10 MG, 2X/DAY [1 IN AM AND 1 IN EVENING]
     Dates: start: 201411

REACTIONS (1)
  - Peripheral swelling [Not Recovered/Not Resolved]
